FAERS Safety Report 13246595 (Version 2)
Quarter: 2017Q1

REPORT INFORMATION
  Report Type: Spontaneous
  Country: US (occurrence: US)
  Receive Date: 20170217
  Receipt Date: 20170329
  Transmission Date: 20170428
  Serious: Yes (Hospitalization, Disabling, Other)
  Sender: FDA-Public Use
  Company Number: US-009507513-1105USA02541

PATIENT
  Sex: Male
  Weight: 86.64 kg

DRUGS (6)
  1. FOSAMAX [Suspect]
     Active Substance: ALENDRONATE SODIUM
     Indication: OSTEOPOROSIS
     Dosage: 70 MG, UNKNOWN
     Route: 048
     Dates: start: 2005, end: 200904
  2. ALENDRONATE SODIUM. [Suspect]
     Active Substance: ALENDRONATE SODIUM
     Indication: OSTEOPOROSIS
     Dosage: 70 MG, UNKNOWN
     Route: 048
     Dates: start: 20100322
  3. MK-9278 [Concomitant]
     Active Substance: VITAMINS
     Indication: PRODUCT USED FOR UNKNOWN INDICATION
     Dosage: UNK UNK, QD
     Route: 065
  4. ALENDRONATE SODIUM. [Suspect]
     Active Substance: ALENDRONATE SODIUM
     Indication: OSTEOPOROSIS
     Dosage: 70 MG, UNKNOWN
     Route: 048
     Dates: start: 20090216, end: 201002
  5. FOSAMAX [Suspect]
     Active Substance: ALENDRONATE SODIUM
     Indication: OSTEOPOROSIS PROPHYLAXIS
  6. ACTONEL [Concomitant]
     Active Substance: RISEDRONATE SODIUM
     Indication: OSTEOPOROSIS PROPHYLAXIS
     Dosage: 35 MG, UNK
     Route: 065
     Dates: start: 2002, end: 2005

REACTIONS (53)
  - Myelomalacia [Unknown]
  - Cough [Unknown]
  - Atelectasis [Unknown]
  - Pneumonia [Unknown]
  - Pneumothorax [Unknown]
  - Low turnover osteopathy [Unknown]
  - Stress fracture [Unknown]
  - Incontinence [Not Recovered/Not Resolved]
  - Constipation [Not Recovered/Not Resolved]
  - Joint swelling [Unknown]
  - Spinal cord compression [Unknown]
  - Flatulence [Unknown]
  - Hydronephrosis [Unknown]
  - Palpitations [Unknown]
  - Respiratory failure [Unknown]
  - Joint injury [Unknown]
  - Laceration [Unknown]
  - Delirium [Recovered/Resolved]
  - Osteoporosis [Unknown]
  - Bursitis [Unknown]
  - Irritable bowel syndrome [Unknown]
  - Deformity thorax [Unknown]
  - Fall [Unknown]
  - Dyspnoea [Unknown]
  - Faeces discoloured [Recovered/Resolved]
  - Abdominal pain [Not Recovered/Not Resolved]
  - Diarrhoea [Not Recovered/Not Resolved]
  - Arthrodesis [Unknown]
  - Compartment syndrome [Unknown]
  - Urinary tract infection [Unknown]
  - Femur fracture [Unknown]
  - Muscle spasms [Not Recovered/Not Resolved]
  - Paraesthesia [Unknown]
  - Kyphosis [Unknown]
  - Osteopenia [Unknown]
  - Constipation [Unknown]
  - Abdominal pain upper [Unknown]
  - Bone disorder [Unknown]
  - Vitamin D deficiency [Unknown]
  - Tibia fracture [Recovering/Resolving]
  - Femur fracture [Unknown]
  - Joint injury [Unknown]
  - Drug hypersensitivity [Unknown]
  - Exostosis [Unknown]
  - Fibula fracture [Recovered/Resolved]
  - Spinal disorder [Unknown]
  - Back pain [Unknown]
  - Benign neoplasm [Unknown]
  - Cellulitis [Unknown]
  - Fracture [Unknown]
  - Feeding disorder [Unknown]
  - Impaired healing [Unknown]
  - Fall [Unknown]

NARRATIVE: CASE EVENT DATE: 20050911
